FAERS Safety Report 12632391 (Version 2)
Quarter: 2016Q3

REPORT INFORMATION
  Report Type: Spontaneous
  Country: US (occurrence: US)
  Receive Date: 20160808
  Receipt Date: 20160808
  Transmission Date: 20161109
  Serious: No
  Sender: FDA-Public Use
  Company Number: US-BEH-2016062699

PATIENT
  Sex: Female
  Weight: 71 kg

DRUGS (11)
  1. GABAPENTIN. [Concomitant]
     Active Substance: GABAPENTIN
  2. LEXAPRO [Concomitant]
     Active Substance: ESCITALOPRAM OXALATE
  3. OMEPRAZOLE. [Concomitant]
     Active Substance: OMEPRAZOLE
  4. EPIPEN [Concomitant]
     Active Substance: EPINEPHRINE
  5. DIPHENHYDRAMINE. [Concomitant]
     Active Substance: DIPHENHYDRAMINE
  6. RANITIDINE. [Concomitant]
     Active Substance: RANITIDINE
  7. HIZENTRA [Suspect]
     Active Substance: HUMAN IMMUNOGLOBULIN G
     Indication: IMMUNODEFICIENCY COMMON VARIABLE
     Route: 058
  8. AMITRIPTYLINE [Concomitant]
     Active Substance: AMITRIPTYLINE
  9. TYLENOL [Concomitant]
     Active Substance: ACETAMINOPHEN
  10. HIZENTRA [Suspect]
     Active Substance: HUMAN IMMUNOGLOBULIN G
     Indication: HYPOGLOBULINAEMIA
     Route: 058
  11. BUTRANS [Concomitant]
     Active Substance: BUPRENORPHINE

REACTIONS (1)
  - Administration site reaction [Unknown]
